FAERS Safety Report 11873152 (Version 1)
Quarter: 2015Q4

REPORT INFORMATION
  Report Type: Report from Study
  Country: FR (occurrence: FR)
  Receive Date: 20151228
  Receipt Date: 20151228
  Transmission Date: 20160305
  Serious: Yes (Hospitalization, Other)
  Sender: FDA-Public Use
  Company Number: PHHY2014FR097320

PATIENT
  Age: 86 Year
  Sex: Male

DRUGS (12)
  1. EXJADE [Suspect]
     Active Substance: DEFERASIROX
     Indication: HAEMOSIDEROSIS
     Dosage: 1125 MG, UNK
     Route: 065
     Dates: start: 20130313, end: 20140319
  2. EXJADE [Suspect]
     Active Substance: DEFERASIROX
     Dosage: 500 MG, UNK
     Dates: start: 20140117, end: 20140129
  3. EXJADE [Suspect]
     Active Substance: DEFERASIROX
     Dosage: 500 UNK, UNK
     Route: 065
     Dates: start: 20140130
  4. EXJADE [Suspect]
     Active Substance: DEFERASIROX
     Dosage: 875 MG, UNK
     Route: 065
     Dates: start: 20140228, end: 20140306
  5. EXJADE [Suspect]
     Active Substance: DEFERASIROX
     Dosage: 1000 MG, UNK
     Route: 065
     Dates: start: 20140307, end: 20140312
  6. EXJADE [Suspect]
     Active Substance: DEFERASIROX
     Dosage: 750 MG, UNK
     Route: 065
     Dates: start: 20140221, end: 20140227
  7. EXJADE [Suspect]
     Active Substance: DEFERASIROX
     Dosage: 250 MG, UNK
     Route: 065
     Dates: start: 20131108, end: 20131205
  8. EXJADE [Suspect]
     Active Substance: DEFERASIROX
     Indication: MYELODYSPLASTIC SYNDROME
     Dosage: 125 MG, QD
     Route: 065
     Dates: start: 20131025, end: 20131108
  9. EXJADE [Suspect]
     Active Substance: DEFERASIROX
     Dosage: 375 MG, UNK
     Route: 065
     Dates: start: 20131206, end: 20131219
  10. EXJADE [Suspect]
     Active Substance: DEFERASIROX
     Dosage: 625 MG, UNK
     Route: 065
     Dates: start: 20140130, end: 20140220
  11. EXJADE [Suspect]
     Active Substance: DEFERASIROX
     Dosage: 500 MG, UNK
     Route: 065
     Dates: start: 20131220, end: 20131224
  12. EXJADE [Suspect]
     Active Substance: DEFERASIROX
     Dosage: 1250 MG, UNK
     Route: 065
     Dates: start: 20140320, end: 20140323

REACTIONS (10)
  - Anaemia [Unknown]
  - Constipation [Recovered/Resolved]
  - Systemic inflammatory response syndrome [Unknown]
  - Back pain [Not Recovered/Not Resolved]
  - Cardiac failure [Recovered/Resolved]
  - Skin lesion [Unknown]
  - General physical health deterioration [Unknown]
  - Disorientation [Not Recovered/Not Resolved]
  - Decubitus ulcer [Recovered/Resolved]
  - Oedema peripheral [Unknown]

NARRATIVE: CASE EVENT DATE: 20131108
